FAERS Safety Report 21595226 (Version 2)
Quarter: 2022Q4

REPORT INFORMATION
  Report Type: Report from Study
  Country: US (occurrence: US)
  Receive Date: 20221115
  Receipt Date: 20221222
  Transmission Date: 20230112
  Serious: Yes (Other)
  Sender: FDA-Public Use
  Company Number: US-ABBVIE-4155040

PATIENT
  Age: 4 Year
  Sex: Female

DRUGS (1)
  1. HUMIRA [Suspect]
     Active Substance: ADALIMUMAB
     Indication: Juvenile idiopathic arthritis
     Dosage: FORM STRENGTH: 40 MILLIGRAM
     Route: 058
     Dates: start: 20210325

REACTIONS (10)
  - Adenotonsillectomy [Unknown]
  - Myalgia [Not Recovered/Not Resolved]
  - Pain [Unknown]
  - Abdominal pain upper [Not Recovered/Not Resolved]
  - Pneumonia [Unknown]
  - Tooth restoration [Recovered/Resolved]
  - Sleep apnoea syndrome [Unknown]
  - Pharyngitis streptococcal [Unknown]
  - Constipation [Not Recovered/Not Resolved]
  - Flatulence [Not Recovered/Not Resolved]

NARRATIVE: CASE EVENT DATE: 20210101
